FAERS Safety Report 7659292-8 (Version None)
Quarter: 2011Q3

REPORT INFORMATION
  Report Type: 
  Country: None (occurrence: None)
  Receive Date: 20110805
  Receipt Date: 20110726
  Transmission Date: 20111222
  Serious: No
  Sender: FDA-Public Use
  Company Number: JP-ROCHE-791358

PATIENT
  Age: 75 Year
  Sex: Female

DRUGS (18)
  1. IRINOTECAN HCL [Suspect]
     Route: 041
     Dates: start: 20080101, end: 20090701
  2. LEUCOVORIN CALCIUM [Concomitant]
     Route: 041
     Dates: start: 20100601
  3. AVASTIN [Suspect]
     Indication: RECTAL CANCER
     Route: 041
     Dates: start: 20080501, end: 20080101
  4. FLUOROURACIL [Concomitant]
     Route: 040
     Dates: start: 20080101, end: 20090701
  5. AVASTIN [Suspect]
     Route: 041
     Dates: start: 20080101, end: 20090701
  6. XELODA [Suspect]
     Indication: RECTAL CANCER
     Route: 048
     Dates: start: 20100301, end: 20100601
  7. AVASTIN [Suspect]
     Route: 041
     Dates: start: 20100301, end: 20100601
  8. OXALIPLATIN [Suspect]
     Route: 041
     Dates: start: 20080501, end: 20080101
  9. FLUOROURACIL [Concomitant]
     Route: 040
     Dates: start: 20080501, end: 20080101
  10. OXALIPLATIN [Suspect]
     Route: 041
     Dates: start: 20100301, end: 20100601
  11. OXALIPLATIN [Suspect]
     Route: 041
     Dates: start: 20100601
  12. FLUOROURACIL [Concomitant]
     Route: 040
     Dates: start: 20080101, end: 20090701
  13. TS-1 [Concomitant]
     Dosage: FORM; PERORAL AGENT
     Route: 048
     Dates: start: 20090801, end: 20100301
  14. FLUOROURACIL [Concomitant]
     Route: 040
     Dates: start: 20100601
  15. AVASTIN [Suspect]
     Route: 041
     Dates: start: 20100601
  16. FLUOROURACIL [Concomitant]
     Route: 040
     Dates: start: 20080501, end: 20080101
  17. LEUCOVORIN CALCIUM [Concomitant]
     Route: 041
     Dates: start: 20080501, end: 20080101
  18. LEUCOVORIN CALCIUM [Concomitant]
     Route: 041
     Dates: start: 20080101, end: 20090701

REACTIONS (3)
  - ALOPECIA [None]
  - HYPOAESTHESIA [None]
  - DIARRHOEA [None]
